FAERS Safety Report 6252349-8 (Version None)
Quarter: 2009Q2

REPORT INFORMATION
  Report Type: 
  Country: None (occurrence: None)
  Receive Date: 20090629
  Receipt Date: 20090629
  Transmission Date: 20091009
  Serious: Yes (Hospitalization)
  Sender: FDA-Public Use
  Company Number: None

PATIENT
  Age: 74 Year
  Sex: Female
  Weight: 68.9467 kg

DRUGS (1)
  1. ASACOL [Suspect]
     Indication: COLITIS
     Dosage: 9 DAILY 3 TIMES A DAY
     Dates: start: 20090601, end: 20090604

REACTIONS (6)
  - ANGINA PECTORIS [None]
  - DYSPNOEA [None]
  - LIP SWELLING [None]
  - RASH [None]
  - SKIN ULCER [None]
  - URTICARIA [None]
